FAERS Safety Report 15368077 (Version 1)
Quarter: 2018Q3

REPORT INFORMATION
  Report Type: Spontaneous
  Country: US (occurrence: US)
  Receive Date: 20180904
  Receipt Date: 20180904
  Transmission Date: 20181010
  Serious: No
  Sender: FDA-Public Use
  Company Number: None

PATIENT
  Sex: Female

DRUGS (3)
  1. EMBEDA 50?2MG [Concomitant]
  2. REMERON 15MG [Concomitant]
  3. CABOMETYX [Suspect]
     Active Substance: CABOZANTINIB S-MALATE
     Indication: DRUG THERAPY
     Route: 048
     Dates: start: 20180619, end: 20180904

REACTIONS (1)
  - Stomatitis [None]
